FAERS Safety Report 8268029-3 (Version None)
Quarter: 2012Q2

REPORT INFORMATION
  Report Type: 
  Country: None (occurrence: None)
  Receive Date: 20120409
  Receipt Date: 20120403
  Transmission Date: 20120825
  Serious: Yes (Death, Hospitalization)
  Sender: FDA-Public Use
  Company Number: US-BRACCO-007804

PATIENT
  Age: 34 Year
  Sex: Female

DRUGS (2)
  1. GASTROGRAFIN [Suspect]
     Indication: OESOPHAGEAL PERFORATION
     Route: 048
     Dates: start: 20120326, end: 20120326
  2. GASTROGRAFIN [Suspect]
     Indication: X-RAY
     Route: 048
     Dates: start: 20120326, end: 20120326

REACTIONS (1)
  - ASPIRATION [None]
